FAERS Safety Report 5227275-3 (Version None)
Quarter: 2007Q1

REPORT INFORMATION
  Report Type: 
  Country: None (occurrence: None)
  Receive Date: 20070202
  Receipt Date: 20070123
  Transmission Date: 20070707
  Serious: Yes (Life-Threatening)
  Sender: FDA-Public Use
  Company Number: 2006CG01877

PATIENT
  Age: 22180 Day
  Sex: Male
  Weight: 63 kg

DRUGS (10)
  1. XYLOCAINE [Suspect]
     Indication: LOCAL ANAESTHESIA
     Route: 053
     Dates: start: 20061110, end: 20061110
  2. XYLOCAINE [Suspect]
     Route: 053
     Dates: start: 20061110, end: 20061110
  3. NAROPEINE [Suspect]
     Indication: LOCAL ANAESTHESIA
     Route: 053
     Dates: start: 20061110, end: 20061110
  4. HYPNOVEL [Concomitant]
     Indication: SEDATION
     Dates: start: 20061110, end: 20061110
  5. SUFENTANIL CITRATE [Concomitant]
     Dates: start: 20061110, end: 20061110
  6. SERETIDE [Concomitant]
     Indication: SEDATION
  7. THEOSTAT [Concomitant]
  8. HYZAAR [Concomitant]
  9. LEVOTHYROXINE SODIUM [Concomitant]
  10. INIPOMP [Concomitant]

REACTIONS (13)
  - ACUTE PULMONARY OEDEMA [None]
  - AGITATION [None]
  - ANGINA UNSTABLE [None]
  - ARRHYTHMIA SUPRAVENTRICULAR [None]
  - BUNDLE BRANCH BLOCK RIGHT [None]
  - CARDIAC FAILURE [None]
  - CONDUCTION DISORDER [None]
  - ELECTROCARDIOGRAM REPOLARISATION ABNORMALITY [None]
  - HYPOTENSION [None]
  - MALAISE [None]
  - MUSCULOSKELETAL CHEST PAIN [None]
  - OVERDOSE [None]
  - RESPIRATORY DISTRESS [None]
